FAERS Safety Report 4783857-4 (Version None)
Quarter: 2005Q3

REPORT INFORMATION
  Report Type: 
  Country: None (occurrence: None)
  Receive Date: 20050929
  Receipt Date: 20050908
  Transmission Date: 20060218
  Serious: Yes (Death, Hospitalization)
  Sender: FDA-Public Use
  Company Number: IT-MERCK-0509ITA00011

PATIENT
  Age: 75 Year
  Sex: Male

DRUGS (6)
  1. ZOCOR [Suspect]
     Indication: DYSLIPIDAEMIA
     Route: 048
     Dates: start: 20050801, end: 20050812
  2. CARVEDILOL [Concomitant]
     Route: 048
     Dates: start: 20050701
  3. TICLOPIDINE HYDROCHLORIDE [Concomitant]
     Route: 048
     Dates: start: 20050101
  4. TICLOPIDINE HYDROCHLORIDE [Concomitant]
     Route: 048
     Dates: start: 20050101
  5. ASPIRIN LYSINE [Concomitant]
     Route: 048
     Dates: start: 20050701
  6. FUROSEMIDE [Concomitant]
     Route: 048
     Dates: start: 20050701

REACTIONS (6)
  - BRONCHOPNEUMONIA [None]
  - CARDIAC FAILURE CONGESTIVE [None]
  - DISSEMINATED INTRAVASCULAR COAGULATION [None]
  - DYSPNOEA [None]
  - HEPATITIS [None]
  - MYOPATHY [None]
